FAERS Safety Report 22346391 (Version 1)
Quarter: 2023Q2

REPORT INFORMATION
  Report Type: Report from Study
  Country: BR (occurrence: BR)
  Receive Date: 20230519
  Receipt Date: 20230519
  Transmission Date: 20230722
  Serious: Yes (Hospitalization, Other)
  Sender: FDA-Public Use
  Company Number: BR-BIOGEN-2023BI01206453

PATIENT
  Age: 43 Year
  Sex: Female
  Weight: 50 kg

DRUGS (31)
  1. AVONEX [Suspect]
     Active Substance: INTERFERON BETA-1A
     Indication: Multiple sclerosis
     Route: 050
  2. AVONEX [Suspect]
     Active Substance: INTERFERON BETA-1A
  3. AVONEX [Suspect]
     Active Substance: INTERFERON BETA-1A
  4. AVONEX [Suspect]
     Active Substance: INTERFERON BETA-1A
  5. AVONEX [Suspect]
     Active Substance: INTERFERON BETA-1A
  6. AVONEX [Suspect]
     Active Substance: INTERFERON BETA-1A
  7. AVONEX [Suspect]
     Active Substance: INTERFERON BETA-1A
  8. AVONEX [Suspect]
     Active Substance: INTERFERON BETA-1A
  9. AVONEX [Suspect]
     Active Substance: INTERFERON BETA-1A
  10. AVONEX [Suspect]
     Active Substance: INTERFERON BETA-1A
  11. AVONEX [Suspect]
     Active Substance: INTERFERON BETA-1A
  12. AVONEX [Suspect]
     Active Substance: INTERFERON BETA-1A
  13. AVONEX [Suspect]
     Active Substance: INTERFERON BETA-1A
  14. AVONEX PEN [Suspect]
     Active Substance: INTERFERON BETA-1A
     Indication: Multiple sclerosis
     Route: 050
     Dates: start: 201210
  15. AVONEX PEN [Suspect]
     Active Substance: INTERFERON BETA-1A
     Route: 050
     Dates: start: 20121105, end: 201604
  16. AVONEX PEN [Suspect]
     Active Substance: INTERFERON BETA-1A
     Route: 050
     Dates: start: 2012, end: 2017
  17. AVONEX PEN [Suspect]
     Active Substance: INTERFERON BETA-1A
     Route: 050
     Dates: start: 2005, end: 2016
  18. TAMOXIFEN [Suspect]
     Active Substance: TAMOXIFEN
     Indication: Breast cancer in situ
     Route: 050
     Dates: start: 2013, end: 2018
  19. ALPRAZOLAM [Concomitant]
     Active Substance: ALPRAZOLAM
     Indication: Insomnia
     Route: 050
  20. hyperic dry extract [Concomitant]
     Indication: Irritable bowel syndrome
     Route: 050
  21. hyperic dry extract [Concomitant]
     Route: 050
     Dates: start: 2019
  22. hyperic dry extract [Concomitant]
     Route: 050
  23. RANITIDINE [Concomitant]
     Active Substance: RANITIDINE
     Indication: Gastric disorder
     Route: 050
     Dates: start: 2001
  24. RANITIDINE [Concomitant]
     Active Substance: RANITIDINE
     Route: 050
  25. SIMVASTATIN [Concomitant]
     Active Substance: SIMVASTATIN
     Indication: Inflammation
     Route: 050
  26. SIMVASTATIN [Concomitant]
     Active Substance: SIMVASTATIN
     Route: 050
     Dates: start: 2018
  27. Lonium (Otilonium Bromide) [Concomitant]
     Indication: Irritable bowel syndrome
     Route: 050
  28. Lonium (Otilonium Bromide) [Concomitant]
     Route: 050
     Dates: start: 2006, end: 2018
  29. MAGNESIUM ASPARTATE [Concomitant]
     Active Substance: MAGNESIUM ASPARTATE
     Indication: Product used for unknown indication
     Route: 050
  30. OMEPRAZOLE [Concomitant]
     Active Substance: OMEPRAZOLE
     Indication: Pain prophylaxis
     Route: 050
  31. OMEPRAZOLE [Concomitant]
     Active Substance: OMEPRAZOLE
     Route: 050

REACTIONS (5)
  - Breast cancer in situ [Recovered/Resolved]
  - Uterine haemorrhage [Recovered/Resolved]
  - Uterine leiomyoma [Recovered/Resolved]
  - Benign neoplasm of bladder [Recovered/Resolved]
  - Breast mass [Recovered/Resolved]

NARRATIVE: CASE EVENT DATE: 20130501
